FAERS Safety Report 20383382 (Version 1)
Quarter: 2022Q1

REPORT INFORMATION
  Report Type: Spontaneous
  Country: JP (occurrence: JP)
  Receive Date: 20220127
  Receipt Date: 20220127
  Transmission Date: 20220423
  Serious: Yes (Hospitalization)
  Sender: FDA-Public Use
  Company Number: JP-Eisai-202110966_LEN_P_1

PATIENT
  Age: 69 Year
  Sex: Female

DRUGS (4)
  1. LENVATINIB [Suspect]
     Active Substance: LENVATINIB
     Indication: Papillary thyroid cancer
     Route: 048
  2. LENVATINIB [Suspect]
     Active Substance: LENVATINIB
     Route: 048
  3. LENVATINIB [Suspect]
     Active Substance: LENVATINIB
     Route: 048
  4. LENVATINIB [Suspect]
     Active Substance: LENVATINIB
     Dosage: 5 DAYS ON/2 DAYS OFF
     Route: 048

REACTIONS (4)
  - Tumour fistulisation [Recovered/Resolved]
  - Fatigue [Unknown]
  - Neutropenia [Unknown]
  - Hypertension [Unknown]
